FAERS Safety Report 10253726 (Version 1)
Quarter: 2014Q2

REPORT INFORMATION
  Report Type: Spontaneous
  Country: US (occurrence: US)
  Receive Date: 20140623
  Receipt Date: 20140623
  Transmission Date: 20141212
  Serious: Yes (Death)
  Sender: FDA-Public Use
  Company Number: US-PFIZER INC-2014171970

PATIENT
  Age: 68 Year
  Sex: Male
  Weight: 92.97 kg

DRUGS (3)
  1. RAPAMUNE [Suspect]
     Indication: PROPHYLAXIS AGAINST TRANSPLANT REJECTION
     Dosage: UNK
     Dates: start: 201111
  2. REVATIO [Suspect]
     Dosage: 20 MG, 3X/DAY
     Dates: start: 201111
  3. VFEND [Suspect]
     Indication: LUNG INFECTION
     Dosage: 200 MG, 2X/DAY
     Dates: start: 201309

REACTIONS (2)
  - Pulmonary fibrosis [Fatal]
  - Off label use [Unknown]
